FAERS Safety Report 10404217 (Version 1)
Quarter: 2014Q1

REPORT INFORMATION
  Report Type: Spontaneous
  Country: US (occurrence: None)
  Receive Date: 20140122
  Receipt Date: 20140122
  Transmission Date: 20141002
  Serious: No
  Sender: FDA-Public Use
  Company Number: AEGR000056

PATIENT
  Age: 71 Year
  Sex: Female

DRUGS (14)
  1. JUXTAPID (LOMITAPIDE) CAPSULE, 5MG [Suspect]
     Indication: HYPERCHOLESTEROLAEMIA
     Route: 048
     Dates: start: 20130426
  2. BENICAR HCT (HYDROCHLOROTHIAZIDE, OLMESARTAN MEDOXOMIL) (TABLET) (HYDROCHLOROTHIAZIDE, OLMESARTAN MEDOXOMIL) [Concomitant]
  3. EFFEXOR XR (VENLAFAXINE HYDROCHLORIDE) (75 MILLIGRAM, CAPSULE) (VENLAFAXINE HYDROCHLORIDE) [Concomitant]
  4. VALIUM (DIAZEPAM) [Concomitant]
  5. OMEGA 3 FISH OIL (FISH OIL) [Concomitant]
  6. ASA (ACETYLSALICYLIC ACID) [Concomitant]
  7. GARLIC (GARLIC) [Concomitant]
  8. CALCIUM +D (CALCIUM CARBONATE, COLECALCIFEROL) [Concomitant]
  9. FLAXSEED OIL (FLAXSEED OIL) [Concomitant]
  10. ECHINACEA SPP. (ECHINACEA SPP.) [Concomitant]
  11. VICODIN (HYDROCODONE BITARTRATE, PARACETAMOL) [Concomitant]
  12. NEXIUM (ESOMEPRAZOLE SODIUM) [Concomitant]
  13. DULCOLAX (BISACODYL) [Concomitant]
  14. BENICAR (OLMESARTAN MEDOXOMIL [Concomitant]

REACTIONS (4)
  - Liver disorder [None]
  - Renal disorder [None]
  - Off label use [None]
  - Diarrhoea [None]
